FAERS Safety Report 8983952 (Version 1)
Quarter: 2012Q4

REPORT INFORMATION
  Report Type: Spontaneous
  Country: US (occurrence: None)
  Receive Date: 20121214
  Receipt Date: 20121214
  Transmission Date: 20130627
  Serious: Yes (Death)
  Sender: FDA-Public Use
  Company Number: 2012AP004222

PATIENT
  Age: 27 Year
  Sex: Male

DRUGS (5)
  1. LEVETIRACETAM TABLETS 1000MG (LEVETIRACETAM) [Suspect]
  2. ALPRAZOLAM [Suspect]
  3. BENZOYLECGONINE [Suspect]
  4. OXYMORPHONE [Suspect]
  5. OXYCODONE [Suspect]

REACTIONS (2)
  - Accidental poisoning [None]
  - Drug level below therapeutic [None]
